FAERS Safety Report 8200870-5 (Version None)
Quarter: 2012Q1

REPORT INFORMATION
  Report Type: 
  Country: None (occurrence: None)
  Receive Date: 20120312
  Receipt Date: 20110623
  Transmission Date: 20120608
  Serious: No
  Sender: FDA-Public Use
  Company Number: US-ABBOTT-11P-163-0734905-00

PATIENT
  Sex: Female
  Weight: 104.42 kg

DRUGS (7)
  1. UNKNOWN ALLERGY MEDICATION [Concomitant]
     Indication: SEASONAL ALLERGY
     Route: 048
  2. LUPRON DEPOT [Suspect]
     Indication: ANAEMIA
  3. IRON [Concomitant]
     Indication: ANAEMIA
  4. UNKNOWN INHALERS [Concomitant]
     Indication: ASTHMA
  5. LUPRON DEPOT [Suspect]
     Indication: VAGINAL HAEMORRHAGE
     Route: 030
     Dates: start: 20110201
  6. FLEXERIL [Concomitant]
     Indication: MYALGIA
     Route: 048
  7. FLEXERIL [Concomitant]
     Indication: OSTEOARTHRITIS

REACTIONS (1)
  - VAGINAL HAEMORRHAGE [None]
